FAERS Safety Report 6394329-8 (Version None)
Quarter: 2009Q4

REPORT INFORMATION
  Report Type: 
  Country: None (occurrence: None)
  Receive Date: 20091006
  Receipt Date: 20090928
  Transmission Date: 20100525
  Serious: Yes (Other)
  Sender: FDA-Public Use
  Company Number: IE-000720

PATIENT
  Sex: Male

DRUGS (4)
  1. FIRMAGON [Suspect]
     Indication: PROSTATE CANCER
     Dosage: (SUBCUTANEOUS),  (80 MG 1X SUBCUTANEOUS)
     Route: 058
     Dates: start: 20090608, end: 20090706
  2. FIRMAGON [Suspect]
     Indication: PROSTATE CANCER
     Dosage: (SUBCUTANEOUS),  (80 MG 1X SUBCUTANEOUS)
     Route: 058
  3. NU-SEALS ASPIRIN  I [Concomitant]
  4. NEXIUM [Concomitant]

REACTIONS (4)
  - DEPRESSED MOOD [None]
  - FATIGUE [None]
  - LETHARGY [None]
  - NAUSEA [None]
